FAERS Safety Report 4855632-3 (Version None)
Quarter: 2005Q4

REPORT INFORMATION
  Report Type: 
  Country: None (occurrence: None)
  Receive Date: 20051213
  Receipt Date: 20051202
  Transmission Date: 20060501
  Serious: Yes (Life-Threatening)
  Sender: FDA-Public Use
  Company Number: IT200512000508

PATIENT
  Age: 64 Year
  Sex: Male

DRUGS (7)
  1. ALIMTA [Suspect]
     Indication: PLEURAL MESOTHELIOMA
     Dosage: 935 MG, 3/W, INTRAVENOUS
     Route: 042
     Dates: start: 20051005, end: 20051026
  2. LEUCOVORIN CALCIUM [Concomitant]
  3. SOLDESAM (DEXAMETHASONE SODIUM PHOSPHATE) [Concomitant]
  4. LIMICAN (ALIZAPRIDE HYDROCHLORIDE) [Concomitant]
  5. OXYCONTIN [Concomitant]
  6. OMEPRAZOLE [Concomitant]
  7. TENORMIN [Concomitant]

REACTIONS (2)
  - GASTROINTESTINAL NECROSIS [None]
  - PERITONITIS [None]
